FAERS Safety Report 12803060 (Version 1)
Quarter: 2016Q4

REPORT INFORMATION
  Report Type: Spontaneous
  Country: US (occurrence: US)
  Receive Date: 20161001
  Receipt Date: 20161001
  Transmission Date: 20170207
  Serious: Yes (Other)
  Sender: FDA-Public Use
  Company Number: None

PATIENT
  Age: 48 Year
  Sex: Female
  Weight: 72.9 kg

DRUGS (7)
  1. ST. JOHN^S WORT [Concomitant]
     Active Substance: ST. JOHN^S WORT
  2. ALLEGRA [Concomitant]
     Active Substance: FEXOFENADINE HYDROCHLORIDE
  3. EVENING PRIMROSE OIL [Concomitant]
     Active Substance: EVENING PRIMROSE OIL
  4. LEVOTHYROXINE. [Concomitant]
     Active Substance: LEVOTHYROXINE
  5. BUPROPION HCL XL 300MG [Suspect]
     Active Substance: BUPROPION HYDROCHLORIDE
     Indication: DEPRESSION
     Dosage: OTHER DAILY ORAL
     Route: 048
     Dates: start: 20160908, end: 20161001
  6. BLACK COHOSH [Concomitant]
     Active Substance: BLACK COHOSH
  7. MULTIVITAMIN [Concomitant]
     Active Substance: VITAMINS

REACTIONS (7)
  - Diarrhoea [None]
  - Suicidal ideation [None]
  - Gastric disorder [None]
  - Product substitution issue [None]
  - Crying [None]
  - Decreased activity [None]
  - Drug ineffective [None]

NARRATIVE: CASE EVENT DATE: 20160915
